FAERS Safety Report 10922488 (Version 2)
Quarter: 2015Q2

REPORT INFORMATION
  Report Type: Spontaneous
  Country: JP (occurrence: JP)
  Receive Date: 20150317
  Receipt Date: 20150421
  Transmission Date: 20150821
  Serious: No
  Sender: FDA-Public Use
  Company Number: JP-ASTRAZENECA-2015SE23552

PATIENT
  Age: 22143 Day
  Sex: Female
  Weight: 70 kg

DRUGS (6)
  1. FORXIGA [Suspect]
     Active Substance: DAPAGLIFLOZIN
     Indication: DIABETES MELLITUS
     Route: 048
     Dates: start: 201409
  2. FORXIGA [Suspect]
     Active Substance: DAPAGLIFLOZIN
     Indication: DIABETES MELLITUS
     Route: 048
     Dates: start: 20140811, end: 20140825
  3. LIPITOR [Concomitant]
     Active Substance: ATORVASTATIN CALCIUM
     Indication: DYSLIPIDAEMIA
     Route: 048
     Dates: start: 20110912
  4. CORINAEL L [Concomitant]
     Route: 065
  5. CELTOP [Concomitant]
     Indication: HYPERTENSION
     Route: 048
     Dates: start: 20110912
  6. NIFEDIPINE. [Concomitant]
     Active Substance: NIFEDIPINE
     Indication: HYPERTENSION
     Route: 048
     Dates: start: 20110912

REACTIONS (2)
  - Dizziness [None]
  - Rash pruritic [Recovering/Resolving]

NARRATIVE: CASE EVENT DATE: 20141006
